FAERS Safety Report 8432318-X (Version None)
Quarter: 2012Q2

REPORT INFORMATION
  Report Type: 
  Country: None (occurrence: None)
  Receive Date: 20120613
  Receipt Date: 20120609
  Transmission Date: 20120825
  Serious: Yes (Other)
  Sender: FDA-Public Use
  Company Number: PHHY2012US049481

PATIENT
  Age: 62 Year
  Sex: Female

DRUGS (9)
  1. SULFAMETHOXAZOLE [Concomitant]
  2. CORTICOSTEROIDS [Concomitant]
  3. TRIMETHOPRIM [Concomitant]
  4. TACROLIMUS [Suspect]
     Indication: IMMUNOSUPPRESSION
  5. VORICONAZOLE [Concomitant]
     Dosage: UNK
  6. VALGANCICLOVIR [Concomitant]
  7. PREDNISONE TAB [Suspect]
     Indication: IMMUNOSUPPRESSION
  8. BASILIXIMAB [Suspect]
     Indication: IMMUNOSUPPRESSION
  9. MYCOPHENOLATE MOFETIL [Suspect]
     Indication: IMMUNOSUPPRESSION

REACTIONS (2)
  - PLEURAL EFFUSION [None]
  - COCCIDIOIDOMYCOSIS [None]
